FAERS Safety Report 12983131 (Version 1)
Quarter: 2016Q4

REPORT INFORMATION
  Report Type: Spontaneous
  Country: US (occurrence: US)
  Receive Date: 20161129
  Receipt Date: 20161129
  Transmission Date: 20170207
  Serious: No
  Sender: FDA-Public Use
  Company Number: US-MALLINCKRODT-T201603638

PATIENT
  Sex: Female
  Weight: 67 kg

DRUGS (1)
  1. FENTANYL TRANSDERMAL SYSTEM [Suspect]
     Active Substance: FENTANYL
     Indication: PRODUCT USED FOR UNKNOWN INDICATION
     Dosage: 50 MCG/HR, Q72H
     Route: 062
     Dates: start: 201604, end: 2016

REACTIONS (5)
  - Burning sensation [Not Recovered/Not Resolved]
  - Skin exfoliation [Unknown]
  - Product adhesion issue [Unknown]
  - Scab [Unknown]
  - Scar [Not Recovered/Not Resolved]

NARRATIVE: CASE EVENT DATE: 2016
